FAERS Safety Report 11783243 (Version 3)
Quarter: 2015Q4

REPORT INFORMATION
  Report Type: Spontaneous
  Country: JP (occurrence: JP)
  Receive Date: 20151127
  Receipt Date: 20151229
  Transmission Date: 20160305
  Serious: Yes (Other)
  Sender: FDA-Public Use
  Company Number: PHJP2015JP020938

PATIENT
  Age: 66 Year
  Sex: Male

DRUGS (2)
  1. ONBREZ INHALATION CAPSUL [Suspect]
     Active Substance: INDACATEROL
     Indication: CHRONIC OBSTRUCTIVE PULMONARY DISEASE
     Dosage: 150 UG, QD
     Route: 055
     Dates: start: 20140912, end: 20150306
  2. SEEBRI BREEZHALER CAPSUL [Suspect]
     Active Substance: GLYCOPYRROLATE
     Indication: CHRONIC OBSTRUCTIVE PULMONARY DISEASE
     Dosage: 50 UG, QD
     Route: 055
     Dates: start: 20140912, end: 20150306

REACTIONS (7)
  - Cardiac failure congestive [Not Recovered/Not Resolved]
  - Dyspnoea [Unknown]
  - Atrial fibrillation [Not Recovered/Not Resolved]
  - Drug ineffective [Unknown]
  - Brain natriuretic peptide increased [Unknown]
  - Cardiac hypertrophy [Unknown]
  - Asthma [Unknown]

NARRATIVE: CASE EVENT DATE: 20150227
